FAERS Safety Report 8485226-2 (Version None)
Quarter: 2012Q3

REPORT INFORMATION
  Report Type: 
  Country: None (occurrence: None)
  Receive Date: 20120703
  Receipt Date: 20120625
  Transmission Date: 20120928
  Serious: Yes (Hospitalization)
  Sender: FDA-Public Use
  Company Number: US-US-EMD SERONO, INC.-7116016

PATIENT
  Sex: Male

DRUGS (18)
  1. NICOTINE [Concomitant]
     Indication: PRODUCT USED FOR UNKNOWN INDICATION
  2. HEPARIN LOCK-FLUSH [Concomitant]
     Indication: PRODUCT USED FOR UNKNOWN INDICATION
  3. TRAZODONE HCL [Concomitant]
     Indication: PRODUCT USED FOR UNKNOWN INDICATION
  4. MIRALAX [Concomitant]
     Indication: PRODUCT USED FOR UNKNOWN INDICATION
  5. PRED FORTE [Concomitant]
     Indication: PRODUCT USED FOR UNKNOWN INDICATION
  6. VFEND [Concomitant]
     Indication: PRODUCT USED FOR UNKNOWN INDICATION
  7. PROGRAF [Concomitant]
     Indication: PRODUCT USED FOR UNKNOWN INDICATION
  8. VALTREX [Concomitant]
     Indication: PRODUCT USED FOR UNKNOWN INDICATION
  9. ZOFRAN [Concomitant]
     Indication: PRODUCT USED FOR UNKNOWN INDICATION
  10. VANTIN [Concomitant]
     Indication: PRODUCT USED FOR UNKNOWN INDICATION
  11. MAGNESIUM SULFATE [Concomitant]
     Indication: SUPPLEMENTATION THERAPY
  12. MEGACE [Concomitant]
     Indication: PRODUCT USED FOR UNKNOWN INDICATION
  13. REMERON [Concomitant]
     Indication: PRODUCT USED FOR UNKNOWN INDICATION
  14. MDX-1338/BMS 936564 [Suspect]
     Indication: ACUTE MYELOID LEUKAEMIA
     Route: 042
     Dates: start: 20111107, end: 20111118
  15. CALCIUM CARBONATE [Concomitant]
     Indication: SUPPLEMENTATION THERAPY
  16. NOVANTRONE [Suspect]
     Indication: ACUTE MYELOID LEUKAEMIA
     Route: 042
     Dates: start: 20111114, end: 20111118
  17. CYTARABINE [Suspect]
     Indication: ACUTE MYELOID LEUKAEMIA
     Route: 042
     Dates: start: 20111114, end: 20111118
  18. ETOPOSIDE [Suspect]
     Indication: ACUTE MYELOID LEUKAEMIA
     Route: 042
     Dates: start: 20111114, end: 20111118

REACTIONS (2)
  - SEPSIS [None]
  - LUNG INFECTION [None]
